FAERS Safety Report 5414052-3 (Version None)
Quarter: 2007Q3

REPORT INFORMATION
  Report Type: 
  Country: None (occurrence: None)
  Receive Date: 20070814
  Receipt Date: 20070731
  Transmission Date: 20080115
  Serious: Yes (Hospitalization)
  Sender: FDA-Public Use
  Company Number: US-ELI_LILLY_AND_COMPANY-US200707007143

PATIENT
  Age: 60 Year
  Sex: Female

DRUGS (5)
  1. BYETTA [Suspect]
     Indication: TYPE 2 DIABETES MELLITUS
     Dosage: 10 UG, 2/D
     Route: 058
  2. APIDRA [Concomitant]
     Indication: DIABETES MELLITUS
     Dosage: 38 U, EACH MORNING
  3. APIDRA [Concomitant]
     Dosage: 36 U, OTHER
  4. APIDRA [Concomitant]
     Dosage: 38 U, OTHER
  5. APIDRA [Concomitant]
     Dosage: UNK, AS NEEDED

REACTIONS (1)
  - GASTROINTESTINAL HAEMORRHAGE [None]
